FAERS Safety Report 9380489 (Version 1)
Quarter: 2013Q3

REPORT INFORMATION
  Report Type: Spontaneous
  Country: US (occurrence: US)
  Receive Date: 20130702
  Receipt Date: 20130702
  Transmission Date: 20140515
  Serious: No
  Sender: FDA-Public Use
  Company Number: US-009507513-1306USA011881

PATIENT
  Age: 68 Year
  Sex: Male

DRUGS (1)
  1. PEGINTRON [Suspect]
     Indication: HEPATITIS C
     Dosage: 150 MICROGRAM, QW
     Route: 058
     Dates: start: 20130510, end: 20130614

REACTIONS (3)
  - Hepatitis C RNA increased [Unknown]
  - Drug dose omission [Unknown]
  - Incorrect product storage [Unknown]
